FAERS Safety Report 4593865-4 (Version None)
Quarter: 2005Q1

REPORT INFORMATION
  Report Type: 
  Country: None (occurrence: None)
  Receive Date: 20050301
  Receipt Date: 20050209
  Transmission Date: 20050727
  Serious: Yes (Other)
  Sender: FDA-Public Use
  Company Number: JP-ROCHE-395249

PATIENT
  Age: 51 Year
  Sex: Female

DRUGS (4)
  1. CELLCEPT [Suspect]
     Route: 048
     Dates: start: 20031215
  2. PROGRAF [Suspect]
     Route: 048
     Dates: start: 20031215
  3. MEDROL [Suspect]
     Route: 048
     Dates: start: 20031215
  4. STEROID [Suspect]
     Route: 065
     Dates: start: 20031224

REACTIONS (3)
  - ANURIA [None]
  - PYONEPHROSIS [None]
  - RENAL DISORDER [None]
